FAERS Safety Report 8818892 (Version 1)
Quarter: 2012Q4

REPORT INFORMATION
  Report Type: 
  Country: US (occurrence: US)
  Receive Date: 20121001
  Receipt Date: 20121001
  Transmission Date: 20130627
  Serious: Yes (Hospitalization)
  Sender: FDA-Public Use
  Company Number: PHEH2012US018815

PATIENT
  Sex: Male

DRUGS (2)
  1. TEGRETOL [Suspect]
  2. VITAMIN K [Concomitant]
     Indication: THROMBOSIS
     Dosage: UNK UKN, UNK

REACTIONS (1)
  - Thrombosis [Unknown]
